FAERS Safety Report 12682590 (Version 1)
Quarter: 2016Q3

REPORT INFORMATION
  Report Type: Spontaneous
  Country: GB (occurrence: GB)
  Receive Date: 20160825
  Receipt Date: 20160825
  Transmission Date: 20161109
  Serious: Yes (Other)
  Sender: FDA-Public Use
  Company Number: GB-BAXTER-2016BAX043181

PATIENT
  Sex: Male

DRUGS (6)
  1. RITUXIMAB [Suspect]
     Active Substance: RITUXIMAB
     Indication: FOLLICLE CENTRE LYMPHOMA, FOLLICULAR GRADE I, II, III
     Dosage: 8 ROUNDS, EVERY 2 MONTHS, RCHOP THERAPY
     Route: 065
  2. PREDNISOLONE TEVA [Suspect]
     Active Substance: PREDNISOLONE
     Indication: FOLLICLE CENTRE LYMPHOMA, FOLLICULAR GRADE I, II, III
     Dosage: 8 ROUNDS, RCHOP THERAPY
     Route: 065
     Dates: end: 20151224
  3. VINCRISTINE TEVA [Suspect]
     Active Substance: VINCRISTINE
     Indication: FOLLICLE CENTRE LYMPHOMA, FOLLICULAR GRADE I, II, III
     Dosage: 8 ROUNDS, RCHOP THERAPY
     Route: 065
     Dates: end: 20151224
  4. DOXORUBICIN TEVA [Suspect]
     Active Substance: DOXORUBICIN
     Indication: FOLLICLE CENTRE LYMPHOMA, FOLLICULAR GRADE I, II, III
     Dosage: 8 ROUNDS; DOSING REGIMEN 1, 2, 3, RCHOP THERAPY
     Route: 065
     Dates: end: 20151224
  5. CYCLOPHOSPHAMIDE INJECTION 1G [Suspect]
     Active Substance: CYCLOPHOSPHAMIDE
     Indication: FOLLICLE CENTRE LYMPHOMA, FOLLICULAR GRADE I, II, III
     Dosage: 8 ROUNDS, RCHOP THERAPY
     Route: 065
     Dates: end: 20151224
  6. RITUXIMAB [Suspect]
     Active Substance: RITUXIMAB
     Indication: FOLLICLE CENTRE LYMPHOMA, FOLLICULAR GRADE I, II, III RECURRENT
     Dosage: EVERY 2 MONTHS
     Route: 065

REACTIONS (2)
  - Follicle centre lymphoma, follicular grade I, II, III recurrent [Unknown]
  - Mass [Unknown]
